FAERS Safety Report 12788494 (Version 1)
Quarter: 2016Q3

REPORT INFORMATION
  Report Type: Spontaneous
  Country: US (occurrence: US)
  Receive Date: 20160928
  Receipt Date: 20160928
  Transmission Date: 20161109
  Serious: Yes (Hospitalization)
  Sender: FDA-Public Use
  Company Number: US-TEVA-695683USA

PATIENT
  Age: 76 Year
  Sex: Female
  Weight: 100.11 kg

DRUGS (44)
  1. FISH OIL [Concomitant]
     Active Substance: FISH OIL
     Dates: start: 20130326
  2. VITAMIN B6 [Concomitant]
     Active Substance: PYRIDOXINE HYDROCHLORIDE
     Dates: start: 20090403
  3. LEFLUNOMIDE. [Concomitant]
     Active Substance: LEFLUNOMIDE
     Dates: start: 20150318
  4. VITAMIN C [Concomitant]
     Active Substance: ASCORBIC ACID
     Dates: start: 20090403
  5. MYRBETRIQ [Concomitant]
     Active Substance: MIRABEGRON
     Dates: start: 20151002
  6. PREDNISONE. [Suspect]
     Active Substance: PREDNISONE
     Indication: TEMPORAL ARTERITIS
     Route: 048
     Dates: start: 20150918
  7. IBUPROFEN. [Concomitant]
     Active Substance: IBUPROFEN
     Indication: OSTEOARTHRITIS
     Route: 048
     Dates: start: 20130420, end: 20140617
  8. ADVAIR HFA [Concomitant]
     Active Substance: FLUTICASONE PROPIONATE\SALMETEROL XINAFOATE
     Dates: start: 1999
  9. ALBUTEROL. [Concomitant]
     Active Substance: ALBUTEROL
     Dates: start: 1999
  10. LEVOTHYROXINE SODIUM. [Concomitant]
     Active Substance: LEVOTHYROXINE SODIUM
     Dates: start: 20150225
  11. FERROUS SULFATE. [Concomitant]
     Active Substance: FERROUS SULFATE
     Dates: start: 20141216
  12. CHLORTALIDONE [Concomitant]
     Active Substance: CHLORTHALIDONE
     Dates: start: 20151002
  13. CLOTRIMAZOLE. [Concomitant]
     Active Substance: CLOTRIMAZOLE
     Dates: start: 2011
  14. JANUMET [Concomitant]
     Active Substance: METFORMIN HYDROCHLORIDE\SITAGLIPTIN PHOSPHATE
     Dates: start: 20130914
  15. ZOCOR [Concomitant]
     Active Substance: SIMVASTATIN
     Dates: start: 2008
  16. ATENOLOL. [Concomitant]
     Active Substance: ATENOLOL
     Dates: start: 2011
  17. OYSTER SHELL CALCIUM WITH VITAMIN D [Concomitant]
     Active Substance: CALCIUM\CHOLECALCIFEROL
     Dates: start: 20090403
  18. PROVENTIL [Concomitant]
     Active Substance: ALBUTEROL
     Dates: start: 20110830
  19. SPIRIVA [Concomitant]
     Active Substance: TIOTROPIUM BROMIDE MONOHYDRATE
     Dates: start: 20090403
  20. ASPIRIN. [Concomitant]
     Active Substance: ASPIRIN
     Dates: start: 20151002
  21. WOMAN^S STOOL SOFTENER [Concomitant]
     Dates: start: 20101129
  22. TYLENOL [Concomitant]
     Active Substance: ACETAMINOPHEN
     Dates: start: 20130718
  23. FLUOXETINE [Concomitant]
     Active Substance: FLUOXETINE HYDROCHLORIDE
     Dates: start: 20151002
  24. BETACAROTENE [Concomitant]
     Active Substance: .BETA.-CAROTENE
     Dates: start: 2007
  25. SLOW-MAG [Concomitant]
     Active Substance: MAGNESIUM CHLORIDE
     Dates: start: 20150618
  26. KRILL OIL [Concomitant]
     Active Substance: DIETARY SUPPLEMENT
     Dates: start: 20151002
  27. GABAPENTIN. [Concomitant]
     Active Substance: GABAPENTIN
     Dates: start: 2010
  28. HCTZ [Concomitant]
     Active Substance: HYDROCHLOROTHIAZIDE
     Dates: start: 1993
  29. IPRATROPIUM/ALBUTEROL [Concomitant]
     Active Substance: ALBUTEROL\IPRATROPIUM
     Dates: start: 2003
  30. MACROGOL [Concomitant]
     Active Substance: POLYETHYLENE GLYCOLS
     Dates: start: 20101129
  31. TYLENOL ARTHRITIS PAIN [Concomitant]
     Active Substance: ACETAMINOPHEN
     Dates: start: 20141001
  32. PREDNISONE. [Suspect]
     Active Substance: PREDNISONE
     Indication: RHEUMATOID ARTHRITIS
  33. ALLEGRA [Concomitant]
     Active Substance: FEXOFENADINE HYDROCHLORIDE
     Dates: start: 20090403
  34. METFORMIN [Concomitant]
     Active Substance: METFORMIN HYDROCHLORIDE
     Dates: start: 20140911
  35. VITAMIN E [Concomitant]
     Active Substance: .ALPHA.-TOCOPHEROL
     Dates: start: 20100727
  36. DILAUDID [Concomitant]
     Active Substance: HYDROMORPHONE HYDROCHLORIDE
     Dates: start: 20150925
  37. GLUCOSAMINE SULFATE W/CHONDROITIN [Concomitant]
     Dates: start: 20151002
  38. MYCELEX TROCHE [Concomitant]
     Dates: start: 20151002
  39. MULTIVITAMINS [Concomitant]
     Active Substance: VITAMINS
     Route: 048
     Dates: start: 20090403
  40. LEVOCETIRIZINE [Concomitant]
     Active Substance: LEVOCETIRIZINE
     Dates: start: 20151002
  41. TOPAMAX [Suspect]
     Active Substance: TOPIRAMATE
     Indication: TEMPORAL ARTERITIS
     Dosage: 100 MILLIGRAM DAILY;
     Route: 048
     Dates: start: 20151002
  42. IBUPROFEN. [Concomitant]
     Active Substance: IBUPROFEN
     Indication: RHEUMATOID ARTHRITIS
  43. NEXIUM [Concomitant]
     Active Substance: ESOMEPRAZOLE MAGNESIUM
     Indication: PROPHYLAXIS
     Dates: start: 20130420, end: 20140617
  44. BISACODYL. [Concomitant]
     Active Substance: BISACODYL
     Dates: start: 20151002

REACTIONS (2)
  - Hypokalaemia [Recovered/Resolved]
  - Transient ischaemic attack [Recovered/Resolved]

NARRATIVE: CASE EVENT DATE: 20160121
